FAERS Safety Report 9852655 (Version 4)
Quarter: 2014Q1

REPORT INFORMATION
  Report Type: Spontaneous
  Country: JP (occurrence: JP)
  Receive Date: 20140129
  Receipt Date: 20140224
  Transmission Date: 20141002
  Serious: Yes (Hospitalization, Other)
  Sender: FDA-Public Use
  Company Number: JP-JNJFOC-20140115691

PATIENT
  Age: 52 Year
  Sex: Male

DRUGS (6)
  1. TRAMCET [Suspect]
     Indication: PAIN
     Dosage: 1 PER 1 DAY
     Route: 048
     Dates: start: 20140111
  2. BAYASPIRIN [Concomitant]
     Dosage: 1 PER 1 DAY
     Route: 048
  3. PAXIL [Concomitant]
     Dosage: 1 PER 1 DAY
     Route: 048
  4. TAKEPRON [Concomitant]
     Dosage: 1 PER 1 DAY
     Route: 048
     Dates: start: 20140115
  5. LYRICA [Concomitant]
     Dosage: 1 PER 1 DAY
     Route: 048
     Dates: start: 20140115
  6. PRIMPERAN [Concomitant]
     Dosage: 1 PER 1 DAY
     Route: 065
     Dates: start: 20140111

REACTIONS (2)
  - Gamma-glutamyltransferase increased [Recovering/Resolving]
  - Treatment noncompliance [Unknown]
